FAERS Safety Report 15525362 (Version 1)
Quarter: 2018Q4

REPORT INFORMATION
  Report Type: Report from Study
  Country: None (occurrence: JP)
  Receive Date: 20181018
  Receipt Date: 20181018
  Transmission Date: 20190205
  Serious: Yes (Hospitalization)
  Sender: FDA-Public Use
  Company Number: JP-ABBVIE-18S-087-2520717-00

PATIENT
  Age: 67 Year
  Sex: Female
  Weight: 53.5 kg

DRUGS (9)
  1. AMLODIPINE BESILATE [Concomitant]
     Active Substance: AMLODIPINE BESYLATE
     Indication: HYPERTENSION
     Route: 048
     Dates: start: 20070326, end: 20140722
  2. CELECOXIB. [Concomitant]
     Active Substance: CELECOXIB
     Indication: ARTHRALGIA
     Route: 048
     Dates: start: 20140512, end: 20140513
  3. FAMOTIDINE. [Concomitant]
     Active Substance: FAMOTIDINE
     Indication: DUODENAL ULCER
  4. FELBINAC [Concomitant]
     Active Substance: FELBINAC
     Indication: ARTHRALGIA
     Route: 062
     Dates: start: 20140428, end: 20140512
  5. KETOPROFEN. [Concomitant]
     Active Substance: KETOPROFEN
     Indication: ARTHRALGIA
     Dosage: PRN
     Route: 062
     Dates: start: 20140512, end: 20140530
  6. VIEKIRAX [Suspect]
     Active Substance: OMBITASVIR\PARITAPREVIR\RITONAVIR
     Indication: CHRONIC HEPATITIS C
     Route: 048
     Dates: start: 20140304, end: 20140526
  7. OLMESARTAN MEDOXOMIL. [Concomitant]
     Active Substance: OLMESARTAN MEDOXOMIL
     Indication: HYPERTENSION
     Route: 048
     Dates: start: 20110509
  8. FAMOTIDINE. [Concomitant]
     Active Substance: FAMOTIDINE
     Indication: CHRONIC GASTRITIS
     Route: 048
     Dates: start: 20100329, end: 20140722
  9. REBAMIPIDE [Concomitant]
     Active Substance: REBAMIPIDE
     Indication: GASTRITIS PROPHYLAXIS
     Route: 048
     Dates: start: 20140512, end: 20140513

REACTIONS (1)
  - Macular fibrosis [Recovered/Resolved]

NARRATIVE: CASE EVENT DATE: 20180506
